FAERS Safety Report 10811183 (Version 1)
Quarter: 2015Q1

REPORT INFORMATION
  Report Type: Spontaneous
  Country: JP (occurrence: None)
  Receive Date: 20150212
  Receipt Date: 20150212
  Transmission Date: 20150721
  Serious: Yes (Other)
  Sender: FDA-Public Use
  Company Number: COR_00247_2015

PATIENT
  Sex: Female

DRUGS (6)
  1. NORMAL SALINE [Concomitant]
     Active Substance: SODIUM CHLORIDE
  2. DEXAMETHASONE. [Concomitant]
     Active Substance: DEXAMETHASONE
  3. ANTIEMETICS AND ANTINAUSEANTS [Concomitant]
     Active Substance: UNSPECIFIED INGREDIENT
  4. CARBOPLATIN (CARBOPLATIN) [Suspect]
     Active Substance: CARBOPLATIN
     Indication: NEOPLASM MALIGNANT
     Dosage: AUC = 6 ON DAY 1 EVERY 21 DAYS, BOLUS INFUSION, 9 CYCLES, INTRAPERITONEAL
     Route: 033
  5. PACLITAXEL (PACLITAXEL) [Suspect]
     Active Substance: PACLITAXEL
     Indication: NEOPLASM MALIGNANT
     Dosage: 135 MG/M2, (DAY 1 EVERY 21 DAYS, FOR 3 HOURS, DILUTED IN 500 ML OF SALINE, 9 CYCLES) INTRAVENOUS (NOT OTHERWISE SPECIFIED)??
     Route: 042
  6. ANTIHISTAMINES [Concomitant]
     Active Substance: ANTIHISTAMINES NOS

REACTIONS (1)
  - Febrile neutropenia [None]
